FAERS Safety Report 8220240-3 (Version None)
Quarter: 2012Q1

REPORT INFORMATION
  Report Type: 
  Country: None (occurrence: None)
  Receive Date: 20120320
  Receipt Date: 20120308
  Transmission Date: 20120608
  Serious: Yes (Hospitalization, Other)
  Sender: FDA-Public Use
  Company Number: US-BAYER-2011-076112

PATIENT
  Age: 33 Year
  Sex: Female
  Weight: 58.957 kg

DRUGS (10)
  1. YAZ [Suspect]
     Dosage: UNK
     Route: 048
     Dates: start: 20090501, end: 20091001
  2. ZOLPIDEM [Concomitant]
     Indication: SLEEP DISORDER THERAPY
     Dosage: UNK
     Route: 048
     Dates: start: 20070101, end: 20110101
  3. PERCOCET [Concomitant]
     Indication: LIMB INJURY
     Dosage: UNK
     Route: 048
     Dates: start: 20090828
  4. CLONAZEPAM [Concomitant]
     Dosage: 1 MG, UNK
     Route: 048
     Dates: start: 20080702, end: 20100506
  5. ZOLPIDEM [Concomitant]
     Dosage: UNK
     Route: 048
     Dates: start: 20100323, end: 20100516
  6. TRIAZOLAM [Concomitant]
     Dosage: 0.25 MG
     Route: 048
     Dates: start: 20080702, end: 20100516
  7. CLONAZEPAM [Concomitant]
     Indication: ANXIETY
     Dosage: 1 MG
     Route: 048
     Dates: start: 20070101, end: 20110101
  8. LEVOTHYROXINE SODIUM [Concomitant]
     Indication: THYROID DISORDER
     Dosage: 25 MCG
     Route: 048
     Dates: start: 20070101
  9. PRISTIQ [Concomitant]
     Indication: DEPRESSION
     Dosage: 50 MG
     Route: 048
     Dates: start: 20070101, end: 20110101
  10. PRISTIQ [Concomitant]
     Dosage: UNK
     Route: 048
     Dates: start: 20080702, end: 20100516

REACTIONS (6)
  - INJURY [None]
  - DEEP VEIN THROMBOSIS [None]
  - PAIN [None]
  - THROMBOPHLEBITIS SUPERFICIAL [None]
  - DEPRESSION [None]
  - ANXIETY [None]
